FAERS Safety Report 9002788 (Version 1)
Quarter: 2013Q1

REPORT INFORMATION
  Report Type: Spontaneous
  Country: US (occurrence: US)
  Receive Date: 20130107
  Receipt Date: 20130107
  Transmission Date: 20140127
  Serious: No
  Sender: FDA-Public Use
  Company Number: US-GLAXOSMITHKLINE-A1003731A

PATIENT
  Sex: Female

DRUGS (1)
  1. BENLYSTA [Suspect]
     Indication: PRODUCT USED FOR UNKNOWN INDICATION
     Route: 042
     Dates: start: 201211

REACTIONS (3)
  - Asthenia [Unknown]
  - Myalgia [Unknown]
  - Pain in extremity [Unknown]
